FAERS Safety Report 8584914-7 (Version None)
Quarter: 2012Q3

REPORT INFORMATION
  Report Type: 
  Country: None (occurrence: None)
  Receive Date: 20120730
  Receipt Date: 20120717
  Transmission Date: 20120928
  Serious: Yes (Other)
  Sender: FDA-Public Use
  Company Number: FK201202050

PATIENT
  Age: 13 Year
  Sex: Male

DRUGS (4)
  1. DOXORUBICIN HCL [Concomitant]
  2. CISPLATIN [Concomitant]
  3. METHOTREXATE [Suspect]
     Indication: BONE SARCOMA
     Dosage: 12000 MG/M2, OVER 4 HOURS
  4. LEUCOVORIN CALCIUM [Concomitant]

REACTIONS (2)
  - STOMATITIS [None]
  - PALMAR-PLANTAR ERYTHRODYSAESTHESIA SYNDROME [None]
